FAERS Safety Report 21859754 (Version 3)
Quarter: 2023Q2

REPORT INFORMATION
  Report Type: Spontaneous
  Country: EC (occurrence: EC)
  Receive Date: 20230113
  Receipt Date: 20230417
  Transmission Date: 20230722
  Serious: Yes (Other)
  Sender: FDA-Public Use
  Company Number: EC-PFIZER INC-PV202300005686

PATIENT
  Age: 7 Year
  Sex: Female

DRUGS (3)
  1. SOMATROPIN [Suspect]
     Active Substance: SOMATROPIN
     Dosage: 0.5 MG
     Route: 058
     Dates: start: 20220315, end: 20230323
  2. SOMATROPIN [Suspect]
     Active Substance: SOMATROPIN
     Dosage: 0.3 MG
  3. IBUPROFEN [Concomitant]
     Active Substance: IBUPROFEN
     Dosage: UNK

REACTIONS (7)
  - Malpositioned teeth [Not Recovered/Not Resolved]
  - Gingival swelling [Not Recovered/Not Resolved]
  - Supernumerary teeth [Not Recovered/Not Resolved]
  - Gingival disorder [Not Recovered/Not Resolved]
  - Malocclusion [Not Recovered/Not Resolved]
  - Dental discomfort [Not Recovered/Not Resolved]
  - Bone disorder [Unknown]

NARRATIVE: CASE EVENT DATE: 20220101
